FAERS Safety Report 7910301-8 (Version None)
Quarter: 2011Q4

REPORT INFORMATION
  Report Type: 
  Country: None (occurrence: None)
  Receive Date: 20111111
  Receipt Date: 20100729
  Transmission Date: 20120403
  Serious: No
  Sender: FDA-Public Use
  Company Number: US-BAYER-201030027NA

PATIENT
  Sex: Female

DRUGS (1)
  1. CLIMARA [Suspect]
     Indication: HOT FLUSH
     Dosage: 0.1 MG/D, UNK
     Dates: start: 20100601

REACTIONS (2)
  - PRODUCT ADHESION ISSUE [None]
  - APPLICATION SITE IRRITATION [None]
